FAERS Safety Report 9123484 (Version 1)
Quarter: 2013Q1

REPORT INFORMATION
  Report Type: Spontaneous
  Country: RO (occurrence: RO)
  Receive Date: 20130114
  Receipt Date: 20130114
  Transmission Date: 20140127
  Serious: Yes (Other)
  Sender: FDA-Public Use
  Company Number: RO-ROCHE-1178935

PATIENT
  Age: 65 Year
  Sex: Male
  Weight: 80 kg

DRUGS (4)
  1. TOCILIZUMAB [Suspect]
     Indication: RHEUMATOID ARTHRITIS
     Route: 042
     Dates: start: 20120110, end: 20121218
  2. SULFASALAZIN [Concomitant]
     Indication: RHEUMATOID ARTHRITIS
     Route: 048
     Dates: start: 20121119, end: 20121218
  3. LEFLUNOMIDE [Concomitant]
     Route: 065
     Dates: start: 20120116, end: 20120621
  4. LEFLUNOMIDE [Concomitant]
     Route: 065
     Dates: start: 20120911, end: 20121119

REACTIONS (1)
  - Hepatocellular injury [Recovering/Resolving]
